FAERS Safety Report 6014583-1 (Version None)
Quarter: 2008Q4

REPORT INFORMATION
  Report Type: 
  Country: None (occurrence: None)
  Receive Date: 20081219
  Receipt Date: 20080902
  Transmission Date: 20090506
  Serious: No
  Sender: FDA-Public Use
  Company Number: A0745396A

PATIENT
  Sex: Male

DRUGS (4)
  1. AVODART [Suspect]
     Indication: DRUG USE FOR UNKNOWN INDICATION
  2. AVELOX [Concomitant]
  3. ALTACE [Concomitant]
  4. TRICOR [Concomitant]

REACTIONS (1)
  - HIGH DENSITY LIPOPROTEIN [None]
